FAERS Safety Report 9647447 (Version 2)
Quarter: 2014Q1

REPORT INFORMATION
  Report Type: Spontaneous
  Country: US (occurrence: US)
  Receive Date: 20131028
  Receipt Date: 20140106
  Transmission Date: 20141002
  Serious: Yes (Hospitalization)
  Sender: FDA-Public Use
  Company Number: US-BIOGENIDEC-2013BI101622

PATIENT
  Age: 50 Year
  Sex: Female

DRUGS (3)
  1. AVONEX [Suspect]
     Indication: MULTIPLE SCLEROSIS
     Route: 030
     Dates: start: 20021017, end: 2003
  2. AVONEX [Suspect]
     Indication: MULTIPLE SCLEROSIS
     Route: 030
     Dates: start: 2003, end: 201308
  3. AVONEX [Suspect]
     Indication: MULTIPLE SCLEROSIS
     Route: 030
     Dates: start: 201308

REACTIONS (12)
  - Back injury [Recovered/Resolved]
  - Spinal fracture [Recovered/Resolved]
  - Medical device discomfort [Recovered/Resolved]
  - Road traffic accident [Recovered/Resolved]
  - Hypoaesthesia [Recovered/Resolved]
  - Muscle spasms [Recovered/Resolved]
  - Urinary incontinence [Not Recovered/Not Resolved]
  - Tremor [Recovered/Resolved]
  - Abasia [Not Recovered/Not Resolved]
  - Thermal burn [Unknown]
  - Joint dislocation [Unknown]
  - Injury associated with device [Unknown]
